FAERS Safety Report 23898378 (Version 1)
Quarter: 2024Q2

REPORT INFORMATION
  Report Type: Spontaneous
  Country: US (occurrence: US)
  Receive Date: 20240524
  Receipt Date: 20240524
  Transmission Date: 20240715
  Serious: Yes (Death, Other)
  Sender: FDA-Public Use
  Company Number: US-PRINSTON PHARMACEUTICAL INC.-2024PRN00222

PATIENT
  Age: 62 Year
  Sex: Female

DRUGS (2)
  1. RISPERIDONE [Suspect]
     Active Substance: RISPERIDONE
     Indication: Manic symptom
  2. HALOPERIDOL [Suspect]
     Active Substance: HALOPERIDOL
     Indication: Manic symptom

REACTIONS (4)
  - Delirium [Fatal]
  - Multiple organ dysfunction syndrome [Fatal]
  - Hallucination [Unknown]
  - Pneumonia [Unknown]
